FAERS Safety Report 6626613-4 (Version None)
Quarter: 2010Q1

REPORT INFORMATION
  Report Type: 
  Country: None (occurrence: None)
  Receive Date: 20100309
  Receipt Date: 20100309
  Transmission Date: 20100710
  Serious: Yes (Other)
  Sender: FDA-Public Use
  Company Number: None

PATIENT
  Age: 54 Year
  Sex: Female

DRUGS (1)
  1. LEVAQUIN [Suspect]
     Indication: SINUSITIS
     Dosage: 500 MG ONE TIME DAILY PO
     Route: 048
     Dates: start: 20090518, end: 20090523

REACTIONS (8)
  - ANXIETY [None]
  - ARTHRITIS [None]
  - BURNING SENSATION [None]
  - JOINT CREPITATION [None]
  - PAIN IN EXTREMITY [None]
  - PERIARTHRITIS [None]
  - PLANTAR FASCIITIS [None]
  - TENDONITIS [None]
